FAERS Safety Report 6088726-8 (Version None)
Quarter: 2009Q1

REPORT INFORMATION
  Report Type: 
  Country: None (occurrence: None)
  Receive Date: 20090224
  Receipt Date: 20090217
  Transmission Date: 20090719
  Serious: Yes (Other)
  Sender: FDA-Public Use
  Company Number: US-KINGPHARMUSA00001-K200900172

PATIENT

DRUGS (1)
  1. AVINZA [Suspect]

REACTIONS (1)
  - SUICIDAL IDEATION [None]
